FAERS Safety Report 24606566 (Version 1)
Quarter: 2024Q4

REPORT INFORMATION
  Report Type: Spontaneous
  Country: US (occurrence: US)
  Receive Date: 20241112
  Receipt Date: 20241112
  Transmission Date: 20250115
  Serious: No
  Sender: NOVARTIS
  Company Number: US-002147023-NVSC2024US216619

PATIENT
  Age: 73 Year
  Sex: Female

DRUGS (2)
  1. FEMARA [Suspect]
     Active Substance: LETROZOLE
     Indication: Product used for unknown indication
     Dosage: UNK
     Route: 065
     Dates: start: 202203
  2. MOTRIN [Concomitant]
     Active Substance: IBUPROFEN
     Indication: Product used for unknown indication
     Dosage: 600 MG, QD
     Route: 065

REACTIONS (7)
  - Feeling abnormal [Unknown]
  - Mass [Unknown]
  - Exostosis [Unknown]
  - Bone loss [Unknown]
  - Lactose intolerance [Unknown]
  - Hot flush [Unknown]
  - Insomnia [Unknown]
